FAERS Safety Report 9450105 (Version 1)
Quarter: 2013Q3

REPORT INFORMATION
  Report Type: Spontaneous
  Country: US (occurrence: US)
  Receive Date: 20130809
  Receipt Date: 20130809
  Transmission Date: 20140515
  Serious: No
  Sender: FDA-Public Use
  Company Number: US-AMGEN-USASP2013051182

PATIENT
  Age: 73 Year
  Sex: Female
  Weight: 47.73 kg

DRUGS (1)
  1. NPLATE [Suspect]
     Indication: THROMBOCYTOPENIC PURPURA
     Dosage: 105 MUG, QWK

REACTIONS (4)
  - Vision blurred [Unknown]
  - Arthritis [Unknown]
  - Insomnia [Unknown]
  - Arthralgia [Unknown]
